FAERS Safety Report 15683909 (Version 1)
Quarter: 2018Q4

REPORT INFORMATION
  Report Type: Spontaneous
  Country: US (occurrence: US)
  Receive Date: 20181204
  Receipt Date: 20181204
  Transmission Date: 20190205
  Serious: Yes (Hospitalization, Other)
  Sender: FDA-Public Use
  Company Number: US-CIPLA LTD.-2018US23201

PATIENT

DRUGS (2)
  1. NADOLOL. [Suspect]
     Active Substance: NADOLOL
     Indication: LONG QT SYNDROME
     Dosage: UNK
     Route: 065
  2. NADOLOL. [Suspect]
     Active Substance: NADOLOL
     Dosage: 20 MG, DAILY, (0.74 MG/KG)
     Route: 065

REACTIONS (5)
  - Acute psychosis [Recovering/Resolving]
  - Depression [Recovering/Resolving]
  - Fatigue [Recovering/Resolving]
  - Suicidal ideation [Recovered/Resolved]
  - Anxiety disorder [Recovering/Resolving]
